FAERS Safety Report 11215638 (Version 10)
Quarter: 2025Q3

REPORT INFORMATION
  Report Type: Spontaneous
  Country: US (occurrence: US)
  Receive Date: 20150624
  Receipt Date: 20250926
  Transmission Date: 20251020
  Serious: Yes (Disabling, Other)
  Sender: PFIZER
  Company Number: US-PFIZER INC-2015121709

PATIENT
  Age: 39 Year
  Sex: Female

DRUGS (6)
  1. PREMARIN [Suspect]
     Active Substance: ESTROGENS, CONJUGATED
     Indication: Artificial menopause
     Dates: start: 197101
  2. PREMARIN [Suspect]
     Active Substance: ESTROGENS, CONJUGATED
     Indication: Hormone therapy
     Dates: start: 197104
  3. PREMARIN [Suspect]
     Active Substance: ESTROGENS, CONJUGATED
     Dates: start: 1971, end: 1973
  4. PREMARIN [Suspect]
     Active Substance: ESTROGENS, CONJUGATED
     Dates: start: 1971, end: 1976
  5. PREMARIN [Suspect]
     Active Substance: ESTROGENS, CONJUGATED
     Dates: start: 1973
  6. CORN [Suspect]
     Active Substance: CORN

REACTIONS (25)
  - Choking [Unknown]
  - Illness [Not Recovered/Not Resolved]
  - Hypoglycaemia [Unknown]
  - Onychomadesis [Not Recovered/Not Resolved]
  - Poliomyelitis [Unknown]
  - Condition aggravated [Unknown]
  - Legionella infection [Unknown]
  - Nail growth abnormal [Not Recovered/Not Resolved]
  - Allergic reaction to excipient [Unknown]
  - Pain [Unknown]
  - Allergic sinusitis [Unknown]
  - Paralysis [Unknown]
  - Diarrhoea [Unknown]
  - Rash [Unknown]
  - Nausea [Unknown]
  - Vomiting [Unknown]
  - Abdominal pain [Unknown]
  - Abdominal distension [Unknown]
  - Weight increased [Unknown]
  - Gastrointestinal pain [Unknown]
  - Toxicity to various agents [Unknown]
  - General physical health deterioration [Unknown]
  - Dysphagia [Unknown]
  - Drug hypersensitivity [Unknown]
  - Product label issue [Unknown]

NARRATIVE: CASE EVENT DATE: 19710101
